FAERS Safety Report 21098438 (Version 3)
Quarter: 2022Q4

REPORT INFORMATION
  Report Type: Spontaneous
  Country: US (occurrence: None)
  Receive Date: 20220719
  Receipt Date: 20221006
  Transmission Date: 20230113
  Serious: Yes (Hospitalization)
  Sender: FDA-Public Use
  Company Number: US-MDD US Operations-MDD202207-001985

PATIENT
  Age: 64 Year
  Sex: Female

DRUGS (2)
  1. APOKYN [Suspect]
     Active Substance: APOMORPHINE HYDROCHLORIDE
     Indication: Parkinson^s disease
     Dosage: 30 MG /3 ML
     Route: 058
  2. APOKYN [Suspect]
     Active Substance: APOMORPHINE HYDROCHLORIDE
     Dates: start: 20191210

REACTIONS (4)
  - General physical health deterioration [Unknown]
  - Hospitalisation [Unknown]
  - Hospitalisation [Unknown]
  - Fatigue [Unknown]

NARRATIVE: CASE EVENT DATE: 20220601
